FAERS Safety Report 16084865 (Version 1)
Quarter: 2019Q1

REPORT INFORMATION
  Report Type: Spontaneous
  Country: CN (occurrence: CN)
  Receive Date: 20190318
  Receipt Date: 20190318
  Transmission Date: 20190418
  Serious: Yes (Other)
  Sender: FDA-Public Use
  Company Number: CN-PFIZER INC-2019109637

PATIENT
  Age: 3 Week
  Sex: Male
  Weight: 3.5 kg

DRUGS (1)
  1. CEFOPERAZONE SODIUM [Suspect]
     Active Substance: CEFOPERAZONE SODIUM
     Indication: NEONATAL PNEUMONIA
     Dosage: 0.16 G, 2X/DAY
     Route: 041
     Dates: start: 20190228, end: 20190306

REACTIONS (2)
  - Rash maculo-papular [Recovering/Resolving]
  - Fever neonatal [Unknown]

NARRATIVE: CASE EVENT DATE: 20190306
